FAERS Safety Report 4559094-5 (Version None)
Quarter: 2005Q1

REPORT INFORMATION
  Report Type: 
  Country: None (occurrence: None)
  Receive Date: 20050124
  Receipt Date: 20050118
  Transmission Date: 20050727
  Serious: Yes (Other)
  Sender: FDA-Public Use
  Company Number: 200510467GDDC

PATIENT
  Age: 41 Year
  Sex: Male

DRUGS (4)
  1. INSULIN GLARGINE [Suspect]
  2. SIMVASTATIN [Suspect]
     Indication: HYPERLIPIDAEMIA
     Route: 048
     Dates: start: 20041112, end: 20041208
  3. ASPIRIN [Concomitant]
  4. NOVORAPID [Concomitant]

REACTIONS (2)
  - DRUG INTERACTION [None]
  - HYPOGLYCAEMIA [None]
